FAERS Safety Report 17229068 (Version 1)
Quarter: 2020Q1

REPORT INFORMATION
  Report Type: Spontaneous
  Country: US (occurrence: US)
  Receive Date: 20200102
  Receipt Date: 20200102
  Transmission Date: 20200409
  Serious: Yes (Hospitalization, Other)
  Sender: FDA-Public Use
  Company Number: None

PATIENT
  Age: 42 Year
  Sex: Female

DRUGS (11)
  1. VALSARTAN. [Concomitant]
     Active Substance: VALSARTAN
  2. FLUOXETINE [Concomitant]
     Active Substance: FLUOXETINE HYDROCHLORIDE
  3. MOVANTIK [Concomitant]
     Active Substance: NALOXEGOL OXALATE
  4. HYDROXYZ HCL [Concomitant]
     Active Substance: HYDROXYZINE HYDROCHLORIDE
  5. HYDROCO/APAP [Concomitant]
     Active Substance: ACETAMINOPHEN\HYDROCODONE
  6. DIAZEPAM. [Concomitant]
     Active Substance: DIAZEPAM
  7. ENBREL [Suspect]
     Active Substance: ETANERCEPT
     Indication: RHEUMATOID ARTHRITIS
     Dosage: ?          OTHER FREQUENCY:EVERY WEEK;?
     Route: 058
     Dates: start: 20160217
  8. MIRTAZAPINE. [Concomitant]
     Active Substance: MIRTAZAPINE
  9. ZOLMITRIPTAN. [Concomitant]
     Active Substance: ZOLMITRIPTAN
  10. BOTOX [Concomitant]
     Active Substance: ONABOTULINUMTOXINA
  11. ONDANSETRON [Concomitant]
     Active Substance: ONDANSETRON

REACTIONS (3)
  - Therapy cessation [None]
  - Condition aggravated [None]
  - Spinal operation [None]
